FAERS Safety Report 7481175-7 (Version None)
Quarter: 2011Q2

REPORT INFORMATION
  Report Type: 
  Country: None (occurrence: None)
  Receive Date: 20110516
  Receipt Date: 20110510
  Transmission Date: 20111010
  Serious: Yes (Death)
  Sender: FDA-Public Use
  Company Number: PHHY2011TR39902

PATIENT

DRUGS (1)
  1. DICLOFENAC SODIUM (SOLARAZE) [Suspect]
     Indication: POSTOPERATIVE ANALGESIA
     Route: 030

REACTIONS (2)
  - CEREBELLAR ISCHAEMIA [None]
  - ANAPHYLACTIC REACTION [None]
